FAERS Safety Report 8204059-5 (Version None)
Quarter: 2012Q1

REPORT INFORMATION
  Report Type: 
  Country: None (occurrence: None)
  Receive Date: 20120313
  Receipt Date: 20120229
  Transmission Date: 20120608
  Serious: Yes (Hospitalization)
  Sender: FDA-Public Use
  Company Number: JP-UCBSA-051136

PATIENT
  Age: 28 Year
  Sex: Female

DRUGS (3)
  1. KEPPRA [Suspect]
     Route: 048
     Dates: start: 20110518
  2. LAMICTAL [Concomitant]
     Route: 048
     Dates: start: 20110418
  3. KEPPRA [Suspect]
     Route: 048
     Dates: start: 20110513, end: 20110517

REACTIONS (1)
  - ILEUS [None]
